FAERS Safety Report 8429907-5 (Version None)
Quarter: 2012Q2

REPORT INFORMATION
  Report Type: 
  Country: None (occurrence: None)
  Receive Date: 20120612
  Receipt Date: 20120604
  Transmission Date: 20120825
  Serious: Yes (Death, Life-Threatening, Hospitalization)
  Sender: FDA-Public Use
  Company Number: FR-VERTEX PHARMACEUTICALS INC.-AE-2011-000311

PATIENT
  Sex: Male
  Weight: 82 kg

DRUGS (6)
  1. ALDACTONE [Concomitant]
     Indication: PROPHYLAXIS
     Dates: start: 20090217
  2. VX-950 [Suspect]
     Indication: HEPATITIS C
     Route: 048
     Dates: start: 20110407, end: 20110427
  3. PEGASYS [Concomitant]
     Indication: HEPATITIS C
     Route: 065
     Dates: start: 20110407, end: 20110427
  4. TOCO [Concomitant]
     Indication: INSULIN RESISTANCE
     Route: 048
     Dates: start: 20110131
  5. COPEGUS [Concomitant]
     Indication: HEPATITIS C
     Route: 048
     Dates: start: 20110407, end: 20110427
  6. PROPRANOLOL [Concomitant]
     Indication: VARICES OESOPHAGEAL
     Dates: start: 20111124

REACTIONS (5)
  - ESCHERICHIA SEPSIS [None]
  - SEPTIC SHOCK [None]
  - ULCER HAEMORRHAGE [None]
  - ANAEMIA [None]
  - MULTI-ORGAN FAILURE [None]
